FAERS Safety Report 15732357 (Version 1)
Quarter: 2018Q4

REPORT INFORMATION
  Report Type: Spontaneous
  Country: US (occurrence: US)
  Receive Date: 20181217
  Receipt Date: 20181217
  Transmission Date: 20190205
  Serious: No
  Sender: FDA-Public Use
  Company Number: US-NOVOPROD-632873

PATIENT
  Age: 55 Year
  Sex: Female

DRUGS (2)
  1. TRESIBA [Concomitant]
     Active Substance: INSULIN DEGLUDEC
     Indication: TYPE 2 DIABETES MELLITUS
     Dosage: UNK
     Route: 058
  2. OZEMPIC [Suspect]
     Active Substance: SEMAGLUTIDE
     Indication: TYPE 2 DIABETES MELLITUS
     Dosage: 0.25 MG, UNK
     Route: 058
     Dates: start: 20181107, end: 20181113

REACTIONS (7)
  - Heart rate increased [Recovering/Resolving]
  - Eye pain [Recovering/Resolving]
  - Diplopia [Recovering/Resolving]
  - Blood glucose increased [Recovered/Resolved]
  - Vision blurred [Recovering/Resolving]
  - Feeling abnormal [Recovering/Resolving]
  - Altered visual depth perception [Recovering/Resolving]

NARRATIVE: CASE EVENT DATE: 20181107
